FAERS Safety Report 7903871-7 (Version None)
Quarter: 2011Q4

REPORT INFORMATION
  Report Type: 
  Country: None (occurrence: None)
  Receive Date: 20111109
  Receipt Date: 20110728
  Transmission Date: 20120403
  Serious: No
  Sender: FDA-Public Use
  Company Number: US-BAYER-2011-069967

PATIENT

DRUGS (3)
  1. ALEVE (CAPLET) [Suspect]
     Indication: INCISION SITE PAIN
     Dosage: UNK
     Route: 048
     Dates: start: 20110701, end: 20110701
  2. VICODIN [Concomitant]
  3. ACETAMINOPHEN [Concomitant]

REACTIONS (1)
  - UNEVALUABLE EVENT [None]
